FAERS Safety Report 9411163 (Version 2)
Quarter: 2013Q4

REPORT INFORMATION
  Report Type: Spontaneous
  Country: DE (occurrence: DE)
  Receive Date: 20130721
  Receipt Date: 20131101
  Transmission Date: 20140711
  Serious: Yes (Other)
  Sender: FDA-Public Use
  Company Number: PHHY2013DE076806

PATIENT
  Age: 69 Year
  Sex: Female
  Weight: 63 kg

DRUGS (3)
  1. AFINITOR [Suspect]
     Indication: BREAST CANCER
     Route: 048
     Dates: start: 201211
  2. AFINITOR [Suspect]
     Dosage: 5 MG, QD
     Dates: end: 201301
  3. EXEMESTAN [Concomitant]
     Indication: BREAST CANCER
     Dosage: 25 MG, QD
     Dates: start: 201211, end: 201301

REACTIONS (3)
  - Pain [Recovering/Resolving]
  - Stomatitis [Recovered/Resolved]
  - Decreased appetite [Recovering/Resolving]
